FAERS Safety Report 10687948 (Version 1)
Quarter: 2015Q1

REPORT INFORMATION
  Report Type: Spontaneous
  Country: RO (occurrence: RO)
  Receive Date: 20150102
  Receipt Date: 20150102
  Transmission Date: 20150720
  Serious: Yes (Hospitalization, Other)
  Sender: FDA-Public Use
  Company Number: RO-PFIZER INC-2014358854

PATIENT
  Age: 64 Year
  Sex: Male

DRUGS (8)
  1. PIROXICAM. [Interacting]
     Active Substance: PIROXICAM
     Indication: PAIN
     Dosage: 20 MG, DAILY
  2. ANTINEVRALGIC [Interacting]
     Active Substance: ASPIRIN\CAFFEINE\PHENACETIN
     Indication: PAIN
     Dosage: 900 MG, DAILY
  3. ALGOCALMINE [Interacting]
     Active Substance: METAMIZOLE SODIUM
     Indication: PAIN
     Dosage: 1000 MG, DAILY
  4. CELECOXIB. [Interacting]
     Active Substance: CELECOXIB
     Indication: PAIN
     Dosage: 200 MG, DAILY
  5. BISEPTOL [Interacting]
     Active Substance: SULFAMETHOXAZOLE\TRIMETHOPRIM
     Indication: URINARY TRACT INFECTION
     Dosage: 3 DF, DAILY
  6. MELOXICAM. [Interacting]
     Active Substance: MELOXICAM
     Indication: PAIN
     Dosage: 30 MG, DAILY
     Route: 051
  7. IBUPROFEN. [Suspect]
     Active Substance: IBUPROFEN
     Indication: PAIN
     Dosage: 200 MG, DAILY
  8. KETOROLAC [Interacting]
     Active Substance: KETOROLAC\KETOROLAC TROMETHAMINE
     Indication: PAIN
     Dosage: 60 MG, DAILY
     Route: 051

REACTIONS (11)
  - Polyneuropathy [None]
  - Polymyositis [None]
  - Intentional product misuse [Unknown]
  - Rhabdomyolysis [Recovering/Resolving]
  - Peripheral swelling [None]
  - Drug interaction [Unknown]
  - Hypocalcaemia [None]
  - Acidosis [None]
  - Hyponatraemia [None]
  - Self-medication [None]
  - Hyperuricaemia [None]
